FAERS Safety Report 10816355 (Version 1)
Quarter: 2015Q1

REPORT INFORMATION
  Report Type: Spontaneous
  Country: CZ (occurrence: CZ)
  Receive Date: 20150218
  Receipt Date: 20150218
  Transmission Date: 20150721
  Serious: Yes (Life-Threatening, Other)
  Sender: FDA-Public Use
  Company Number: CZ-MYLANLABS-2015M1003775

PATIENT

DRUGS (7)
  1. PACLITAXEL MYLAN 6 MG/ML [Suspect]
     Active Substance: PACLITAXEL
     Indication: BREAST CANCER
     Dosage: 1 DF, QW
     Route: 041
     Dates: start: 20150116, end: 20150126
  2. OXAZEPAM L??IVA [Concomitant]
     Dosage: UNK
     Route: 048
  3. TORECAN [Concomitant]
     Active Substance: THIETHYLPERAZINE MALATE
     Dosage: UNK
     Route: 048
  4. PRESTARIUM NEO [Concomitant]
     Dosage: UNK
     Route: 048
  5. PARALEN 500 [Concomitant]
     Dosage: 500 MG, QD
     Route: 048
  6. PACLITAXEL MYLAN 6 MG/ML [Suspect]
     Active Substance: PACLITAXEL
     Dosage: 1 DF, QW
     Route: 041
     Dates: start: 20150116, end: 20150126
  7. APO-ALLOPURINOL [Concomitant]
     Active Substance: ALLOPURINOL
     Dosage: UNK
     Route: 048

REACTIONS (4)
  - Anaphylactic reaction [Recovered/Resolved]
  - Altered state of consciousness [Recovered/Resolved]
  - Hypotension [Recovered/Resolved]
  - Tachycardia [Recovered/Resolved]

NARRATIVE: CASE EVENT DATE: 20150126
